FAERS Safety Report 4667459-6 (Version None)
Quarter: 2005Q2

REPORT INFORMATION
  Report Type: 
  Country: None (occurrence: None)
  Receive Date: 20050520
  Receipt Date: 20040806
  Transmission Date: 20051028
  Serious: Yes (Hospitalization)
  Sender: FDA-Public Use
  Company Number: US-2004-BP-06613BP

PATIENT
  Sex: Female
  Weight: 54 kg

DRUGS (7)
  1. SPIRIVA [Suspect]
     Indication: CHRONIC OBSTRUCTIVE PULMONARY DISEASE
     Route: 055
     Dates: start: 20040702
  2. VERAPAMIL [Concomitant]
     Route: 048
  3. LASIX [Concomitant]
     Route: 048
  4. LANOXIN [Concomitant]
     Route: 048
  5. BEXTRA [Concomitant]
     Route: 048
  6. MILTOWN [Concomitant]
  7. POTASSIUM CHLORIDE [Concomitant]

REACTIONS (3)
  - ATRIAL FIBRILLATION [None]
  - DYSPNOEA EXACERBATED [None]
  - EYE PAIN [None]
